FAERS Safety Report 19723764 (Version 1)
Quarter: 2021Q3

REPORT INFORMATION
  Report Type: Other
  Country: DE (occurrence: DE)
  Receive Date: 20210820
  Receipt Date: 20210820
  Transmission Date: 20211014
  Serious: Yes (Life-Threatening, Hospitalization)
  Sender: FDA-Public Use
  Company Number: DE-AUROBINDO-AUR-APL-2014-05256

PATIENT
  Age: 43 Year
  Sex: Female
  Weight: 95 kg

DRUGS (7)
  1. METFORMIN AUROBINDO FILMCOATED TABLETS 1000MG [Suspect]
     Active Substance: METFORMIN HYDROCHLORIDE
     Dosage: 3000 MILLIGRAM, ONCE A DAY
     Route: 048
     Dates: start: 201403, end: 20140316
  2. METFORMIN AUROBINDO FILMCOATED TABLETS 1000MG [Suspect]
     Active Substance: METFORMIN HYDROCHLORIDE
     Dosage: 1000 MILLIGRAM, ONCE A DAY
     Route: 048
     Dates: start: 201403, end: 20140316
  3. VICTOZA [Suspect]
     Active Substance: LIRAGLUTIDE
     Indication: TYPE 2 DIABETES MELLITUS
     Dosage: UNK UNK,UNK,,6 MG/ML, INCREASED WITHIN TWO WEEKS UP TO 12MG/ML
     Route: 065
     Dates: start: 201403
  4. VICTOZA [Suspect]
     Active Substance: LIRAGLUTIDE
     Dosage: 6 MILLIGRAM PER MILLILETER, DAILY
     Route: 065
     Dates: start: 201403
  5. VICTOZA [Suspect]
     Active Substance: LIRAGLUTIDE
     Dosage: 12 MILLIGRAM PER MILLILETER, DAILY
     Route: 065
     Dates: start: 201403
  6. METFORMIN AUROBINDO FILMCOATED TABLETS 1000MG [Suspect]
     Active Substance: METFORMIN HYDROCHLORIDE
     Indication: TYPE 2 DIABETES MELLITUS
     Dosage: 1000 MG,3 TIMES A DAY,
     Route: 048
     Dates: start: 20140316
  7. VICTOZA [Suspect]
     Active Substance: LIRAGLUTIDE
     Dosage: UNK UNK,UNK,
     Route: 065
     Dates: start: 2014

REACTIONS (6)
  - Gastrointestinal pain [Recovered/Resolved]
  - Lactic acidosis [Recovered/Resolved]
  - Vomiting [Recovered/Resolved]
  - Nausea [Recovered/Resolved]
  - Acute kidney injury [Recovered/Resolved]
  - Decreased appetite [Recovered/Resolved]

NARRATIVE: CASE EVENT DATE: 20140317
